FAERS Safety Report 11988540 (Version 2)
Quarter: 2016Q2

REPORT INFORMATION
  Report Type: Report from Study
  Country: US (occurrence: US)
  Receive Date: 20160202
  Receipt Date: 20160518
  Transmission Date: 20160815
  Serious: Yes (Death, Hospitalization)
  Sender: FDA-Public Use
  Company Number: US-BAYER-2015-001536

PATIENT
  Age: 65 Year
  Sex: Male
  Weight: 71.66 kg

DRUGS (8)
  1. ADEMPAS [Suspect]
     Active Substance: RIOCIGUAT
     Indication: PULMONARY ARTERIAL HYPERTENSION
     Dosage: 2.5 MG, TID
     Route: 048
  2. ADEMPAS [Suspect]
     Active Substance: RIOCIGUAT
     Indication: PULMONARY ARTERIAL HYPERTENSION
     Dosage: 2.5 MG, TID
     Route: 048
     Dates: start: 20140907
  3. ADEMPAS [Suspect]
     Active Substance: RIOCIGUAT
     Indication: PULMONARY ARTERIAL HYPERTENSION
     Dosage: UNK
     Dates: start: 20140803
  4. ADEMPAS [Suspect]
     Active Substance: RIOCIGUAT
     Indication: PULMONARY ARTERIAL HYPERTENSION
     Dosage: UNK
     Route: 048
     Dates: start: 20140624
  5. ADCIRCA [Concomitant]
     Active Substance: TADALAFIL
  6. ADEMPAS [Suspect]
     Active Substance: RIOCIGUAT
     Indication: PULMONARY ARTERIAL HYPERTENSION
     Dosage: 2.5 MG, TID
     Route: 048
  7. TYVASO [Concomitant]
     Active Substance: TREPROSTINIL
     Dosage: UNK
  8. ADEMPAS [Suspect]
     Active Substance: RIOCIGUAT
     Indication: PULMONARY ARTERIAL HYPERTENSION
     Dosage: 2.5 MG, TID
     Route: 048

REACTIONS (15)
  - Dyspnoea exertional [None]
  - Abdominal distension [None]
  - Eye pruritus [None]
  - Malaise [Unknown]
  - Hospitalisation [None]
  - Cough [None]
  - Feeling abnormal [Unknown]
  - Headache [None]
  - Sleep disorder [Unknown]
  - Swelling [Unknown]
  - Death [Fatal]
  - Pneumonia [Unknown]
  - Sinusitis [None]
  - Nausea [None]
  - Insomnia [Unknown]
